FAERS Safety Report 7575131-8 (Version None)
Quarter: 2011Q2

REPORT INFORMATION
  Report Type: 
  Country: None (occurrence: None)
  Receive Date: 20110627
  Receipt Date: 20090408
  Transmission Date: 20111010
  Serious: Yes (Death, Other)
  Sender: FDA-Public Use
  Company Number: US-BAYER-2010-002271

PATIENT
  Age: 54 Year
  Sex: Male
  Weight: 109 kg

DRUGS (29)
  1. FRESH FROZEN PLASMA [Concomitant]
     Route: 042
  2. LIPITOR [Concomitant]
     Dosage: 40 MG, QD
     Route: 048
  3. LASIX [Concomitant]
     Dosage: 60 MG, TID
     Route: 048
  4. SILDENAFIL CITRATE [Concomitant]
     Dosage: 50 MG, TID
     Route: 048
  5. NITROGLYCERIN [Concomitant]
     Dosage: 0.4 MG AS NEEDED
     Route: 060
  6. METOPROLOL TARTRATE [Concomitant]
     Dosage: 50 MG, BID
     Route: 048
  7. DIGOXIN [Concomitant]
     Dosage: 0.125 MG, QD
     Route: 048
  8. RED BLOOD CELLS [Concomitant]
     Route: 042
  9. HEPARIN [Concomitant]
     Dosage: 33000 U, UNK
     Route: 042
     Dates: start: 20061225, end: 20061225
  10. LANTUS [Concomitant]
     Dosage: 30 UNITS EVERY HOUR OF SLEEP
     Route: 058
  11. LISINOPRIL [Concomitant]
     Dosage: 40 MG, ONCE
     Route: 048
     Dates: end: 20061110
  12. CEFAZOLIN [Concomitant]
     Dosage: 1 G, UNK
     Route: 042
     Dates: start: 20061225, end: 20061225
  13. HUMALOG [Concomitant]
     Dosage: 10 UNITS EVERY AM AND 10 UNITS EVERY PM
     Route: 058
  14. ACETYLSALICYLIC ACID SRT [Concomitant]
     Dosage: 81 MG, QD
     Route: 048
  15. AMICAR [Concomitant]
     Dosage: 12.5 G, UNK
     Route: 042
     Dates: start: 20061225, end: 20061225
  16. ATORVASTATIN [Concomitant]
     Dosage: 40 MG, ONCE
     Route: 048
  17. DOPAMINE HCL [Concomitant]
     Dosage: 4MCG/KG/MIN
     Route: 042
     Dates: start: 20061225
  18. TRASYLOL [Suspect]
     Indication: IMPLANTABLE DEFIBRILLATOR REMOVAL
  19. AMIODARONE HCL [Concomitant]
     Dosage: 200 MG, QD
     Route: 048
  20. LEXAPRO [Concomitant]
     Dosage: 10 MG, QD
     Route: 048
  21. VIAGRA [Concomitant]
     Indication: DECREASED VENTRICULAR AFTERLOAD
     Dosage: 5 MG, QD
     Route: 048
     Dates: start: 20061207
  22. TRASYLOL [Suspect]
     Indication: HEART TRANSPLANT
     Dosage: UNK
     Route: 042
     Dates: start: 20061225
  23. VANCOMYCIN [Concomitant]
     Dosage: 1 G, QD
     Route: 042
     Dates: start: 20061209
  24. NATRECOR [Concomitant]
     Dosage: 0.01MG/KG/MIN
     Route: 042
     Dates: start: 20061101
  25. COREG [Concomitant]
     Dosage: 25 MG, TID
     Route: 048
  26. MILRINONE [Concomitant]
     Dosage: 10 MG
     Route: 042
  27. COUMADIN [Concomitant]
     Dosage: 7 MG, QD
     Route: 048
     Dates: start: 20061208
  28. SPIRONOLACTONE [Concomitant]
     Dosage: 50 MG, QD
     Route: 048
  29. PLATELETS [Concomitant]
     Dosage: 2 U, UNK
     Route: 042

REACTIONS (10)
  - MULTI-ORGAN FAILURE [None]
  - DEPRESSION [None]
  - DEATH [None]
  - ANXIETY [None]
  - RENAL INJURY [None]
  - INJURY [None]
  - PAIN [None]
  - RENAL FAILURE [None]
  - RENAL FAILURE ACUTE [None]
  - FEAR [None]
